FAERS Safety Report 22399872 (Version 2)
Quarter: 2023Q2

REPORT INFORMATION
  Report Type: Spontaneous
  Country: JP (occurrence: JP)
  Receive Date: 20230602
  Receipt Date: 20230608
  Transmission Date: 20230722
  Serious: No
  Sender: FDA-Public Use
  Company Number: JP-PFIZER INC-PV202300071278

PATIENT
  Age: 34 Year
  Sex: Female
  Weight: 50 kg

DRUGS (1)
  1. SOLU-MEDROL [Suspect]
     Active Substance: METHYLPREDNISOLONE SODIUM SUCCINATE
     Dosage: UNK

REACTIONS (2)
  - Product container issue [Unknown]
  - Skin laceration [Unknown]

NARRATIVE: CASE EVENT DATE: 20230401
